FAERS Safety Report 7324527-8 (Version None)
Quarter: 2011Q1

REPORT INFORMATION
  Report Type: 
  Country: None (occurrence: None)
  Receive Date: 20110301
  Receipt Date: 20110222
  Transmission Date: 20110831
  Serious: Yes (Hospitalization, Other)
  Sender: FDA-Public Use
  Company Number: PL-PFIZER INC-2011023619

PATIENT
  Age: 74 Year
  Sex: Female
  Weight: 69 kg

DRUGS (2)
  1. TIENAM [Suspect]
     Indication: SEPSIS
     Dosage: 3 G, DAILY, EVERY 8HRS 30-MINUTES INFUSION
     Route: 042
     Dates: start: 20110105, end: 20110115
  2. ZYVOX [Suspect]
     Indication: ENTEROCOCCAL INFECTION
     Dosage: 1.2 G A DAY, EVERY 12HRS
     Route: 042
     Dates: start: 20110105, end: 20110115

REACTIONS (3)
  - PARESIS [None]
  - HEMIANOPIA [None]
  - THROMBOCYTOPENIA [None]
